FAERS Safety Report 11820284 (Version 2)
Quarter: 2015Q4

REPORT INFORMATION
  Report Type: Spontaneous
  Country: US (occurrence: US)
  Receive Date: 20151210
  Receipt Date: 20151229
  Transmission Date: 20160305
  Serious: No
  Sender: FDA-Public Use
  Company Number: US-AMGEN-USASP2015129677

PATIENT
  Age: 58 Year
  Sex: Female

DRUGS (10)
  1. CHLOROPHYLL [Concomitant]
     Dosage: UNK
  2. EPA                                /01403701/ [Concomitant]
     Dosage: UNK
  3. PLAQUENIL [Concomitant]
     Active Substance: HYDROXYCHLOROQUINE SULFATE
     Dosage: UNK
  4. VITAMIN C [Concomitant]
     Active Substance: ASCORBIC ACID
     Dosage: UNK
  5. ENBREL [Suspect]
     Active Substance: ETANERCEPT
     Indication: RHEUMATOID ARTHRITIS
     Dosage: 50 MG, ONCE WEEKLY
     Route: 058
  6. ALPHA LIPOIC ACID [Concomitant]
     Active Substance: .ALPHA.-LIPOIC ACID
     Dosage: UNK
  7. LEUCOVORIN CALCIUM. [Concomitant]
     Active Substance: LEUCOVORIN CALCIUM
     Dosage: UNK
  8. SPIRULINA                          /01514001/ [Concomitant]
     Active Substance: SPIRULINA
     Dosage: UNK
  9. METHOTREXATE [Concomitant]
     Active Substance: METHOTREXATE
     Dosage: UNK
  10. FOLIC ACID. [Concomitant]
     Active Substance: FOLIC ACID
     Dosage: UNK

REACTIONS (7)
  - Injection site pain [Unknown]
  - Injection site induration [Unknown]
  - Drug dose omission [Unknown]
  - Injection site swelling [Unknown]
  - Injection site bruising [Unknown]
  - Anxiety [Not Recovered/Not Resolved]
  - Activities of daily living impaired [Unknown]
